FAERS Safety Report 5806944-8 (Version None)
Quarter: 2008Q3

REPORT INFORMATION
  Report Type: 
  Country: None (occurrence: None)
  Receive Date: 20080711
  Receipt Date: 20080630
  Transmission Date: 20090109
  Serious: Yes (Hospitalization)
  Sender: FDA-Public Use
  Company Number: GB-ROCHE-573246

PATIENT
  Sex: Female
  Weight: 145.2 kg

DRUGS (16)
  1. ORLISTAT [Suspect]
     Indication: OBESITY
     Route: 048
     Dates: start: 20080123
  2. METFORMIN [Concomitant]
     Route: 048
  3. SPIRONOLACTONE [Concomitant]
     Route: 048
  4. BISOPROLOL FUMARATE [Concomitant]
     Dosage: REPORTED AS BISOPOLOL
     Route: 048
  5. FUROSEMIDE [Concomitant]
     Route: 048
  6. ASPIRIN [Concomitant]
     Route: 048
  7. IKOREL [Concomitant]
     Route: 048
  8. COZAAR [Concomitant]
     Route: 048
  9. OMEPRAZOLE [Concomitant]
     Route: 048
  10. ISOTARD [Concomitant]
     Route: 048
  11. PRAVASTATIN [Concomitant]
     Route: 048
  12. CETIRIZINE HCL [Concomitant]
     Route: 048
  13. ACETAMINOPHEN [Concomitant]
     Route: 048
  14. AMITRIPTYLINE HCL [Concomitant]
     Route: 048
  15. QUININE [Concomitant]
     Route: 048
  16. NOVOLOG MIX 70/30 [Concomitant]
     Route: 058

REACTIONS (1)
  - TRANSIENT ISCHAEMIC ATTACK [None]
